FAERS Safety Report 8715818 (Version 4)
Quarter: 2013Q4

REPORT INFORMATION
  Report Type: Spontaneous
  Country: US (occurrence: US)
  Receive Date: 20120809
  Receipt Date: 20131118
  Transmission Date: 20140711
  Serious: No
  Sender: FDA-Public Use
  Company Number: US-ASTRAZENECA-2012SE26946

PATIENT
  Age: 87 Year
  Sex: Female
  Weight: 54.4 kg

DRUGS (3)
  1. CRESTOR [Suspect]
     Indication: BLOOD CHOLESTEROL ABNORMAL
     Route: 048
  2. SYNTHROID [Concomitant]
  3. ANALAPRIL [Concomitant]

REACTIONS (8)
  - Dysphonia [Unknown]
  - Bone disorder [Unknown]
  - Malaise [Unknown]
  - Hearing impaired [Unknown]
  - Weight decreased [Unknown]
  - Blood cholesterol increased [Unknown]
  - Blood triglycerides increased [Unknown]
  - Intentional drug misuse [Unknown]
